FAERS Safety Report 13255015 (Version 1)
Quarter: 2017Q1

REPORT INFORMATION
  Report Type: Spontaneous
  Country: US (occurrence: US)
  Receive Date: 20170221
  Receipt Date: 20170221
  Transmission Date: 20170428
  Serious: Yes (Hospitalization, Other)
  Sender: FDA-Public Use
  Company Number: PHEH2017US004532

PATIENT

DRUGS (1)
  1. GILENYA [Suspect]
     Active Substance: FINGOLIMOD HYDROCHLORIDE
     Indication: PRODUCT USED FOR UNKNOWN INDICATION
     Route: 065

REACTIONS (9)
  - Hepatitis [Unknown]
  - Gait disturbance [Unknown]
  - Cardiovascular disorder [Unknown]
  - Pain [Unknown]
  - Aneurysm [Unknown]
  - Movement disorder [Unknown]
  - Weight increased [Unknown]
  - Scar [Unknown]
  - Post procedural complication [Unknown]
